FAERS Safety Report 8780690 (Version 2)
Quarter: 2012Q4

REPORT INFORMATION
  Report Type: 
  Country: US (occurrence: US)
  Receive Date: 20120913
  Receipt Date: 20121003
  Transmission Date: 20130627
  Serious: No
  Sender: FDA-Public Use
  Company Number: US-ASTRAZENECA-2012SE64989

PATIENT
  Age: 60 Year
  Sex: Female

DRUGS (14)
  1. CAPRELSA [Suspect]
     Route: 048
     Dates: start: 20120823
  2. CAPRELSA [Suspect]
     Route: 048
     Dates: start: 20120823
  3. AMERGE [Concomitant]
  4. CLONAZEPAM [Concomitant]
  5. CLOTRIMAZOLE [Concomitant]
  6. DEPAKOTE [Concomitant]
  7. FLUDROCORTISONE ACETATE [Concomitant]
  8. GLUCSAMINE CHONDROTIN [Concomitant]
  9. MIRALAX [Concomitant]
  10. PANTANOL [Concomitant]
  11. VITAMIN E [Concomitant]
  12. VITAMN D [Concomitant]
  13. ZOFRAN [Concomitant]
  14. ZOLOFT [Concomitant]

REACTIONS (11)
  - Muscle spasms [Unknown]
  - Muscle spasms [Unknown]
  - Tremor [Unknown]
  - Paraesthesia oral [Unknown]
  - Hypoaesthesia oral [Unknown]
  - Fatigue [Unknown]
  - Diarrhoea [Unknown]
  - Headache [Unknown]
  - Abdominal pain upper [Unknown]
  - Nausea [Unknown]
  - Glossodynia [Unknown]
